FAERS Safety Report 22383674 (Version 1)
Quarter: 2023Q2

REPORT INFORMATION
  Report Type: Report from Study
  Country: IT (occurrence: IT)
  Receive Date: 20230530
  Receipt Date: 20230530
  Transmission Date: 20230722
  Serious: Yes (Other)
  Sender: FDA-Public Use
  Company Number: IT-KOREA IPSEN Pharma-2023-11948

PATIENT

DRUGS (4)
  1. CABOZANTINIB [Suspect]
     Active Substance: CABOZANTINIB
     Indication: Neuroendocrine tumour of the lung
     Dosage: UNK
     Route: 048
     Dates: start: 20230308, end: 20230424
  2. CABOZANTINIB [Suspect]
     Active Substance: CABOZANTINIB
     Indication: Off label use
  3. TEMOZOLOMIDE [Suspect]
     Active Substance: TEMOZOLOMIDE
     Indication: Neuroendocrine tumour of the lung
     Dosage: 1 TABLET 140 MG DAILY EVERY OTHER WEEK. 1 TABLET 20 MG DAILY EVERY OTHER WEEK
     Route: 048
     Dates: start: 20230308
  4. TEMOZOLOMIDE [Suspect]
     Active Substance: TEMOZOLOMIDE
     Dosage: 1 TABLET 140 MG DAILY EVERY OTHER WEEK. 1 TABLET 20 MG DAILY EVERY OTHER WEEK
     Route: 048
     Dates: end: 20230424

REACTIONS (1)
  - Intestinal perforation [Not Recovered/Not Resolved]

NARRATIVE: CASE EVENT DATE: 20230424
